FAERS Safety Report 8968752 (Version 1)
Quarter: 2012Q4

REPORT INFORMATION
  Report Type: 
  Country: US (occurrence: US)
  Receive Date: 20121218
  Receipt Date: 20121218
  Transmission Date: 20130627
  Serious: No
  Sender: FDA-Public Use
  Company Number: US-BRISTOL-MYERS SQUIBB COMPANY-16722811

PATIENT
  Age: 12 Year
  Sex: Male
  Weight: 38.09 kg

DRUGS (1)
  1. ABILIFY [Suspect]
     Indication: BIPOLAR DISORDER
     Dosage: started at 5mg,incr to 10mg, again decr to 5mg daily in Spring 2012 and discontinued
     Dates: start: 201108

REACTIONS (1)
  - Visual impairment [Recovering/Resolving]
